FAERS Safety Report 8017212-0 (Version None)
Quarter: 2012Q1

REPORT INFORMATION
  Report Type: 
  Country: None (occurrence: None)
  Receive Date: 20120102
  Receipt Date: 20111222
  Transmission Date: 20120608
  Serious: Yes (Other)
  Sender: FDA-Public Use
  Company Number: PHHY2011JP103640

PATIENT
  Sex: Male
  Weight: 55 kg

DRUGS (7)
  1. ADVAIR DISKUS 100/50 [Concomitant]
     Dosage: 250 UG, UNK
  2. RIZE [Concomitant]
     Indication: INSOMNIA
     Dosage: 5 MG, UNK
     Route: 048
     Dates: start: 20100424, end: 20110906
  3. ADALAT [Concomitant]
     Dosage: 20 MG, UNK
     Route: 048
     Dates: start: 20100424
  4. ADVAIR DISKUS 100/50 [Concomitant]
     Dosage: 500 UG, UNK
  5. AMOBAN [Concomitant]
     Indication: INSOMNIA
     Dosage: 7.5 MG, UNK
     Route: 048
     Dates: start: 20110906
  6. DIOVAN HCT [Suspect]
     Indication: HYPERTENSION
     Dosage: 1 DF, DAILY
     Route: 048
     Dates: start: 20110414, end: 20111109
  7. ADVAIR DISKUS 100/50 [Concomitant]
     Dosage: 100 UG, UNK
     Dates: start: 20100424

REACTIONS (8)
  - DYSPNOEA [None]
  - ASTHMA [None]
  - FATIGUE [None]
  - WHEEZING [None]
  - HYPONATRAEMIA [None]
  - DECREASED APPETITE [None]
  - MALAISE [None]
  - BLOOD CHLORIDE DECREASED [None]
